FAERS Safety Report 24770487 (Version 1)
Quarter: 2024Q4

REPORT INFORMATION
  Report Type: Report from Study
  Country: US (occurrence: US)
  Receive Date: 20241224
  Receipt Date: 20241224
  Transmission Date: 20250114
  Serious: Yes (Other)
  Sender: RANBAXY
  Company Number: US-SUN PHARMACEUTICAL INDUSTRIES LTD-2024R1-486034

PATIENT
  Age: 35 Year

DRUGS (5)
  1. METHOTREXATE [Suspect]
     Active Substance: METHOTREXATE
     Indication: Erdheim-Chester disease
     Dosage: UNK
     Route: 065
  2. TOCILIZUMAB [Suspect]
     Active Substance: TOCILIZUMAB
     Indication: Erdheim-Chester disease
     Dosage: UNK
     Route: 065
  3. COBIMETINIB [Suspect]
     Active Substance: COBIMETINIB
     Indication: Erdheim-Chester disease
     Dosage: UNK
     Route: 065
  4. HYDROXYUREA [Suspect]
     Active Substance: HYDROXYUREA
     Indication: Erdheim-Chester disease
     Dosage: UNK
     Route: 065
  5. CLADRIBINE [Suspect]
     Active Substance: CLADRIBINE
     Indication: Erdheim-Chester disease
     Dosage: UNK
     Route: 065

REACTIONS (1)
  - Disease progression [Unknown]
